FAERS Safety Report 23625680 (Version 1)
Quarter: 2024Q1

REPORT INFORMATION
  Report Type: Spontaneous
  Country: US (occurrence: US)
  Receive Date: 20240313
  Receipt Date: 20240313
  Transmission Date: 20240410
  Serious: No
  Sender: FDA-Public Use
  Company Number: US-TARO PHARMACEUTICALS USA INC.-2023TAR01311

PATIENT

DRUGS (1)
  1. TRETINOIN [Suspect]
     Active Substance: TRETINOIN
     Indication: Acne
     Dosage: UNK ONCE DAILY, OD,APPLY SMALL AMOUNT TO AFFECTED AREA
     Route: 061
     Dates: start: 202311

REACTIONS (4)
  - Skin burning sensation [Recovered/Resolved]
  - Dry skin [Recovered/Resolved]
  - Erythema [Recovered/Resolved]
  - Off label use [Unknown]
